FAERS Safety Report 6306189-1 (Version None)
Quarter: 2009Q3

REPORT INFORMATION
  Report Type: 
  Country: None (occurrence: None)
  Receive Date: 20090812
  Receipt Date: 20090731
  Transmission Date: 20100115
  Serious: Yes (Hospitalization)
  Sender: FDA-Public Use
  Company Number: DE-ROCHE-646389

PATIENT
  Sex: Female
  Weight: 73 kg

DRUGS (16)
  1. METHOXY POLYETHYLENE GLYCOL-EPOETIN BETA [Suspect]
     Route: 058
     Dates: start: 20081203
  2. ENALAPRIL MALEATE [Concomitant]
     Dosage: TDD 40
     Dates: start: 20050824
  3. VERAPAMIL [Concomitant]
     Dosage: TDD 120
     Dates: start: 20050916
  4. PANTOZOL [Concomitant]
     Dosage: TDD 40
     Dates: start: 20051025
  5. INSIDON [Concomitant]
     Dosage: TDD: 25
     Dates: start: 20060217
  6. INSIDON [Concomitant]
     Dosage: TDD 25
     Dates: start: 20070828
  7. CELLCEPT [Concomitant]
     Dosage: TDD: 500
     Dates: start: 20070730
  8. CELLCEPT [Concomitant]
     Dosage: TDD 500
     Dates: start: 20071211
  9. FURO [Concomitant]
     Dosage: TDD:1500
     Dates: start: 20070705
  10. FURO [Concomitant]
     Dosage: TDD 1500
     Dates: start: 20080822
  11. PROGRAF [Concomitant]
     Dosage: TDD:2
     Dates: start: 20071213
  12. PROGRAF [Concomitant]
     Dosage: TDD 2
     Dates: start: 20080123
  13. GLUCOBAY [Concomitant]
     Dosage: TDD 150
     Dates: start: 20080414
  14. CATAPRESAN [Concomitant]
     Dosage: TDD: 425
     Dates: start: 20080829
  15. KRAUTERBLUT [Concomitant]
     Dosage: TDD 2G/S
     Dates: start: 20070614
  16. VIT C [Concomitant]
     Dosage: TDD: 2X.
     Dates: start: 20090506

REACTIONS (1)
  - PERICARDIAL EFFUSION [None]
